FAERS Safety Report 5030757-0 (Version None)
Quarter: 2006Q2

REPORT INFORMATION
  Report Type: 
  Country: None (occurrence: None)
  Receive Date: 20060615
  Receipt Date: 20060531
  Transmission Date: 20061013
  Serious: Yes (Hospitalization)
  Sender: FDA-Public Use
  Company Number: 2006BH010470

PATIENT
  Age: 67 Year
  Sex: Male

DRUGS (11)
  1. SODIUM CHLORIDE [Suspect]
     Indication: CHRONIC OBSTRUCTIVE PULMONARY DISEASE
     Dosage: 250 ML; ONCE; UNK
     Dates: start: 20060507, end: 20060507
  2. SODIUM CHLORIDE [Suspect]
     Indication: CHRONIC OBSTRUCTIVE PULMONARY DISEASE
     Dosage: 250 ML; ONCE; UNK
     Dates: start: 20060508, end: 20060508
  3. SOLU-MEDROL [Suspect]
     Indication: CHRONIC OBSTRUCTIVE PULMONARY DISEASE
     Dosage: 40 MG; ONCE; UNK
     Dates: start: 20060507, end: 20060507
  4. SOLU-MEDROL [Suspect]
     Indication: CHRONIC OBSTRUCTIVE PULMONARY DISEASE
     Dosage: 40 MG; ONCE; UNK
     Dates: start: 20060508, end: 20060508
  5. SYNTOPHYLLIN (AMINOPHYLLINE) [Suspect]
     Indication: CHRONIC OBSTRUCTIVE PULMONARY DISEASE
     Dosage: 1 VIAL; ONCE; UNK
     Dates: start: 20060507, end: 20060507
  6. SYNTOPHYLLIN (AMINOPHYLLINE) [Suspect]
     Indication: CHRONIC OBSTRUCTIVE PULMONARY DISEASE
     Dosage: 1 VIAL; ONCE; UNK
     Dates: start: 20060508, end: 20060508
  7. AMBROBENE [Concomitant]
  8. LUSOPRESS [Concomitant]
  9. VENTODISKS [Concomitant]
  10. BERODUAL [Concomitant]
  11. ATROVENT [Concomitant]

REACTIONS (6)
  - BACK PAIN [None]
  - BODY TEMPERATURE INCREASED [None]
  - CHILLS [None]
  - INFUSION RELATED REACTION [None]
  - TREMOR [None]
  - WHEEZING [None]
